FAERS Safety Report 13672899 (Version 1)
Quarter: 2017Q2

REPORT INFORMATION
  Report Type: Spontaneous
  Country: JP (occurrence: JP)
  Receive Date: 20170621
  Receipt Date: 20170621
  Transmission Date: 20170830
  Serious: Yes (Life-Threatening)
  Sender: FDA-Public Use
  Company Number: JP-BAYER-2017-117710

PATIENT
  Age: 75 Year
  Sex: Male

DRUGS (6)
  1. MACROGOL 3350 [Suspect]
     Active Substance: POLYETHYLENE GLYCOL 3350
     Indication: BOWEL PREPARATION
     Dosage: 3 LITER
  2. PACKED RBC [Concomitant]
     Indication: ANAEMIA
     Dosage: 16 UNITS
  3. INSULIN [Concomitant]
     Active Substance: INSULIN NOS
  4. PLASMA [Concomitant]
     Active Substance: HUMAN PLASMA
     Indication: ANAEMIA
     Dosage: 14 UNITS
  5. APIXABAN [Concomitant]
     Active Substance: APIXABAN
  6. PLATELETS [Concomitant]
     Active Substance: HUMAN PLATELET, ALLOGENIC
     Indication: ANAEMIA
     Dosage: 20 UNITS

REACTIONS (1)
  - Septic shock [Recovered/Resolved]
